FAERS Safety Report 5894623-0 (Version None)
Quarter: 2008Q3

REPORT INFORMATION
  Report Type: 
  Country: None (occurrence: None)
  Receive Date: 20080924
  Receipt Date: 20080918
  Transmission Date: 20090109
  Serious: Yes (Other)
  Sender: FDA-Public Use
  Company Number: US-ASTRAZENECA-2008UW19460

PATIENT
  Age: 40 Year
  Sex: Female

DRUGS (3)
  1. CRESTOR [Suspect]
     Route: 048
  2. TRICOR [Concomitant]
  3. METFORMIN HCL [Concomitant]
     Dosage: DAILY

REACTIONS (1)
  - NEPHROLITHIASIS [None]
